FAERS Safety Report 7206811-1 (Version None)
Quarter: 2011Q1

REPORT INFORMATION
  Report Type: 
  Country: None (occurrence: None)
  Receive Date: 20110103
  Receipt Date: 20101229
  Transmission Date: 20110831
  Serious: Yes (Death)
  Sender: FDA-Public Use
  Company Number: BE-SANOFI-AVENTIS-2010SA078350

PATIENT
  Age: 50 Year
  Sex: Female

DRUGS (4)
  1. NOVABAN [Concomitant]
  2. LITICAN [Concomitant]
  3. OXALIPLATIN [Suspect]
     Indication: RECTAL CANCER
     Route: 042
     Dates: start: 20101102, end: 20101213
  4. XELODA [Suspect]
     Indication: RECTAL CANCER
     Route: 048
     Dates: start: 20101102, end: 20101216

REACTIONS (1)
  - SUDDEN DEATH [None]
